FAERS Safety Report 6689360-9 (Version None)
Quarter: 2010Q2

REPORT INFORMATION
  Report Type: 
  Country: None (occurrence: None)
  Receive Date: 20100419
  Receipt Date: 20100419
  Transmission Date: 20101027
  Serious: No
  Sender: FDA-Public Use
  Company Number: None

PATIENT
  Sex: Female
  Weight: 33.2 kg

DRUGS (1)
  1. IOVERSOL (OPTIRAY) [Suspect]
     Indication: APPENDICITIS
     Dosage: 70ML ONCE IV
     Route: 042
     Dates: start: 20091211

REACTIONS (3)
  - APPENDICITIS [None]
  - SWELLING FACE [None]
  - VOMITING [None]
